FAERS Safety Report 19725785 (Version 1)
Quarter: 2021Q3

REPORT INFORMATION
  Report Type: Spontaneous
  Country: US (occurrence: US)
  Receive Date: 20210819
  Receipt Date: 20210819
  Transmission Date: 20211014
  Serious: No
  Sender: FDA-Public Use
  Company Number: None

PATIENT
  Age: 68 Year
  Sex: Male

DRUGS (1)
  1. ZOLEDRONIC ACID SDV 45MG/5ML ACCORD HEALTHCARE [Suspect]
     Active Substance: ZOLEDRONIC ACID
     Indication: PROSTATE CANCER
     Dosage: ?          OTHER DOSE:4MG/5ML;?
     Route: 042
     Dates: start: 202105

REACTIONS (2)
  - Fatigue [None]
  - Laziness [None]

NARRATIVE: CASE EVENT DATE: 202105
